FAERS Safety Report 9899118 (Version 2)
Quarter: 2014Q1

REPORT INFORMATION
  Report Type: Spontaneous
  Country: US (occurrence: US)
  Receive Date: 20140214
  Receipt Date: 20140214
  Transmission Date: 20141002
  Serious: Yes (Other)
  Sender: FDA-Public Use
  Company Number: US-LUNDBECK-DKLU1097098

PATIENT
  Sex: Male

DRUGS (5)
  1. SABRIL (TABLET) [Suspect]
     Indication: INFANTILE SPASMS
     Route: 048
     Dates: start: 20130924
  2. SABRIL (TABLET) [Suspect]
     Route: 048
     Dates: start: 20140113
  3. SABRIL (TABLET) [Suspect]
     Route: 048
     Dates: start: 20140120
  4. SABRIL (TABLET) [Suspect]
     Route: 048
     Dates: start: 20140128
  5. SABRIL (TABLET) [Suspect]
     Route: 048
     Dates: start: 20140130

REACTIONS (3)
  - Convulsion [Unknown]
  - Somnolence [Unknown]
  - Muscle spasms [Unknown]
